FAERS Safety Report 16286544 (Version 1)
Quarter: 2019Q2

REPORT INFORMATION
  Report Type: Spontaneous
  Country: US (occurrence: US)
  Receive Date: 20190507
  Receipt Date: 20190507
  Transmission Date: 20190711
  Serious: Yes (Disabling)
  Sender: FDA-Public Use
  Company Number: None

PATIENT
  Age: 58 Year
  Sex: Female
  Weight: 78.75 kg

DRUGS (5)
  1. VITAMIN D SUPPLEMENT [Concomitant]
     Active Substance: VITAMIN D NOS
  2. TOPROL XL [Concomitant]
     Active Substance: METOPROLOL SUCCINATE
  3. XANAX [Concomitant]
     Active Substance: ALPRAZOLAM
  4. MAGNESIUM SUPPLEMENT [Concomitant]
  5. FLUTICASONE PROPIONATE NASAL SPRAY USP 50 MCG [Suspect]
     Active Substance: FLUTICASONE PROPIONATE
     Indication: UPPER-AIRWAY COUGH SYNDROME
     Dosage: ?          OTHER STRENGTH:MCG;?
     Dates: start: 20190504, end: 20190504

REACTIONS (2)
  - Anosmia [None]
  - Ageusia [None]

NARRATIVE: CASE EVENT DATE: 20190504
